FAERS Safety Report 25872748 (Version 2)
Quarter: 2025Q4

REPORT INFORMATION
  Report Type: Report from Study
  Country: CL (occurrence: CL)
  Receive Date: 20251002
  Receipt Date: 20251003
  Transmission Date: 20260117
  Serious: Yes (Death)
  Sender: ROCHE
  Company Number: CL-ROCHE-10000401303

PATIENT

DRUGS (1)
  1. OCRELIZUMAB [Suspect]
     Active Substance: OCRELIZUMAB
     Indication: Multiple sclerosis
     Route: 065

REACTIONS (4)
  - COVID-19 [Fatal]
  - COVID-19 pneumonia [Unknown]
  - Pneumonia [Unknown]
  - Hypogammaglobulinaemia [Unknown]
